FAERS Safety Report 16526419 (Version 4)
Quarter: 2020Q1

REPORT INFORMATION
  Report Type: Report from Study
  Country: US (occurrence: US)
  Receive Date: 20190703
  Receipt Date: 20200121
  Transmission Date: 20200409
  Serious: Yes (Hospitalization, Disabling)
  Sender: FDA-Public Use
  Company Number: US-ACTELION-A-NJ2019-187660

PATIENT
  Sex: Male
  Weight: 39.91 kg

DRUGS (1)
  1. TRACLEER [Suspect]
     Active Substance: BOSENTAN
     Indication: PULMONARY HYPERTENSION
     Dosage: 125 MG, BID
     Route: 048

REACTIONS (7)
  - Cardiac disorder [Unknown]
  - Fatigue [Unknown]
  - Disability [Unknown]
  - Cerebrovascular accident [Unknown]
  - Communication disorder [Unknown]
  - Hernia [Unknown]
  - Arthralgia [Unknown]
